FAERS Safety Report 16811700 (Version 1)
Quarter: 2019Q3

REPORT INFORMATION
  Report Type: Spontaneous
  Country: US (occurrence: US)
  Receive Date: 20190916
  Receipt Date: 20190916
  Transmission Date: 20191005
  Serious: No
  Sender: FDA-Public Use
  Company Number: US-PFIZER INC-2019393127

PATIENT
  Age: 36 Year
  Sex: Female

DRUGS (4)
  1. SOLU-CORTEF [Suspect]
     Active Substance: HYDROCORTISONE SODIUM SUCCINATE
     Dosage: UNK, AS NEEDED (AS NEEDED WHEN SHE FEELS DIZZY)
  2. HYDROCORTISONE. [Concomitant]
     Active Substance: HYDROCORTISONE
     Dosage: 10 MG, 1X/DAY (EVERY MORNING)
     Route: 048
  3. SOLU-CORTEF [Suspect]
     Active Substance: HYDROCORTISONE SODIUM SUCCINATE
     Indication: DIZZINESS
     Dosage: UNK (DOSE NOT PROVIDED. INJECT 3 TIMES PER MONTH IF PASSED OUT)
     Route: 030
  4. HYDROCORTISONE. [Concomitant]
     Active Substance: HYDROCORTISONE
     Dosage: 5 MG, 3X/DAY
     Route: 048

REACTIONS (5)
  - Product dose omission [Unknown]
  - Product complaint [Unknown]
  - Product preparation issue [Unknown]
  - Product use in unapproved indication [Unknown]
  - Off label use [Unknown]
